FAERS Safety Report 18715816 (Version 1)
Quarter: 2021Q1

REPORT INFORMATION
  Report Type: Spontaneous
  Country: US (occurrence: US)
  Receive Date: 20210108
  Receipt Date: 20210108
  Transmission Date: 20210419
  Serious: Yes (Hospitalization, Other)
  Sender: FDA-Public Use
  Company Number: US-APOTEX-2021AP000372

PATIENT
  Age: 51 Year
  Sex: Male

DRUGS (3)
  1. VALACICLOVIR [Suspect]
     Active Substance: VALACYCLOVIR HYDROCHLORIDE
     Indication: HERPES ZOSTER
     Dosage: 1 GRAM, TID (IMMUNOCOMPROMISED DOSING)
     Route: 065
  2. VALACICLOVIR [Suspect]
     Active Substance: VALACYCLOVIR HYDROCHLORIDE
     Dosage: 500 MILLIGRAM, QD
     Route: 065
  3. ACYCLOVIR. [Suspect]
     Active Substance: ACYCLOVIR
     Indication: HERPES ZOSTER
     Dosage: 800 MILLIGRAM (FIVE TIMES DAILY)
     Route: 065

REACTIONS (6)
  - Confusional state [Unknown]
  - Product prescribing error [Unknown]
  - Condition aggravated [Unknown]
  - Neurotoxicity [Unknown]
  - Hallucination, visual [Unknown]
  - Incorrect dose administered [Unknown]
